FAERS Safety Report 9469396 (Version 3)
Quarter: 2016Q2

REPORT INFORMATION
  Report Type: Report from Study
  Country: US (occurrence: US)
  Receive Date: 20130821
  Receipt Date: 20160520
  Transmission Date: 20160815
  Serious: Yes (Other)
  Sender: FDA-Public Use
  Company Number: US-ROCHE-1261564

PATIENT
  Age: 38 Year
  Sex: Male

DRUGS (13)
  1. AMLODIPINE [Concomitant]
     Active Substance: AMLODIPINE BESYLATE
     Route: 048
  2. BETADINE [Concomitant]
     Active Substance: POVIDONE-IODINE
  3. HYDROCHLOROTHIAZIDE/TRIAMTERENE [Concomitant]
     Active Substance: HYDROCHLOROTHIAZIDE\TRIAMTERENE
  4. TROPICAMIDE. [Concomitant]
     Active Substance: TROPICAMIDE
     Route: 065
  5. METFORMIN HYDROCHLORIDE. [Concomitant]
     Active Substance: METFORMIN HYDROCHLORIDE
     Route: 065
  6. LIDOCAINE. [Concomitant]
     Active Substance: LIDOCAINE
  7. GLIPIZIDE. [Concomitant]
     Active Substance: GLIPIZIDE
  8. SIMVASTATIN. [Concomitant]
     Active Substance: SIMVASTATIN
     Route: 048
  9. ALPHAGAN P [Concomitant]
     Active Substance: BRIMONIDINE TARTRATE
     Dosage: IN RIGHT EYE
     Route: 065
  10. LUCENTIS [Suspect]
     Active Substance: RANIBIZUMAB
     Indication: DIABETIC RETINOPATHY
     Dosage: BOTH EYES, ALSO RECEIVED ON 15/OCT/2014
     Route: 050
  11. LUCENTIS [Suspect]
     Active Substance: RANIBIZUMAB
     Indication: DIABETIC RETINAL OEDEMA
     Dosage: BOTH EYES
     Route: 050
  12. PHENYLEPHRINE [Concomitant]
     Active Substance: PHENYLEPHRINE\PHENYLEPHRINE HYDROCHLORIDE
     Route: 065
  13. PROPARACAINE [Concomitant]
     Active Substance: PROPARACAINE

REACTIONS (12)
  - Vision blurred [Unknown]
  - Visual impairment [Unknown]
  - Ear infection [Unknown]
  - Vitreous floaters [Unknown]
  - Eyelid margin crusting [Unknown]
  - Haemorrhage [Unknown]
  - Hordeolum [Unknown]
  - Retinal exudates [Unknown]
  - Feeling abnormal [Unknown]
  - Eye pain [Unknown]
  - Retinal haemorrhage [Unknown]
  - Asthenopia [Unknown]

NARRATIVE: CASE EVENT DATE: 20130717
